FAERS Safety Report 15627409 (Version 1)
Quarter: 2018Q4

REPORT INFORMATION
  Report Type: Spontaneous
  Country: ES (occurrence: ES)
  Receive Date: 20181116
  Receipt Date: 20181116
  Transmission Date: 20190205
  Serious: Yes (Other)
  Sender: FDA-Public Use
  Company Number: PHHY2018ES151624

PATIENT
  Age: 54 Year
  Sex: Female

DRUGS (2)
  1. CICLOSPORIN [Concomitant]
     Active Substance: CYCLOSPORINE
     Indication: VOGT-KOYANAGI-HARADA SYNDROME
     Dosage: CYCLOSPORINE DOSAGES WERE DIMINISHED PRIOR TO DISCONTINUATION
     Route: 065
  2. METHYLPREDNISOLONE. [Suspect]
     Active Substance: METHYLPREDNISOLONE
     Indication: VOGT-KOYANAGI-HARADA SYNDROME
     Dosage: 3 INTRAVENOUS BOLUS OF CORTICOSTEROIDS (1 G METHYLPREDNISOLONE)
     Route: 040

REACTIONS (4)
  - Condition aggravated [Recovering/Resolving]
  - Exudative retinopathy [Recovering/Resolving]
  - Product use in unapproved indication [Unknown]
  - Chorioretinopathy [Recovering/Resolving]
